FAERS Safety Report 22278972 (Version 2)
Quarter: 2023Q2

REPORT INFORMATION
  Report Type: Spontaneous
  Country: US (occurrence: US)
  Receive Date: 20230503
  Receipt Date: 20230601
  Transmission Date: 20230722
  Serious: No
  Sender: FDA-Public Use
  Company Number: US-PFIZER INC-202300173357

PATIENT
  Age: 38 Year
  Sex: Female
  Weight: 81.633 kg

DRUGS (2)
  1. FLUCONAZOLE [Suspect]
     Active Substance: FLUCONAZOLE
     Indication: Fungal infection
     Dosage: 150 MG ONCE AND AGAIN 3 DAYS LATER
     Dates: start: 20230418, end: 20230418
  2. FLUCONAZOLE [Suspect]
     Active Substance: FLUCONAZOLE
     Dosage: 150 MG ONCE AND AGAIN 3 DAYS LATER
     Dates: start: 20230421, end: 20230421

REACTIONS (5)
  - Rash [Not Recovered/Not Resolved]
  - Oral mucosal eruption [Not Recovered/Not Resolved]
  - Cheilitis [Not Recovered/Not Resolved]
  - Urticaria [Unknown]
  - Off label use [Unknown]

NARRATIVE: CASE EVENT DATE: 20230418
